FAERS Safety Report 25143810 (Version 1)
Quarter: 2025Q2

REPORT INFORMATION
  Report Type: Report from Study
  Country: DE (occurrence: DE)
  Receive Date: 20250401
  Receipt Date: 20250401
  Transmission Date: 20250716
  Serious: Yes (Other)
  Sender: RANBAXY
  Company Number: DE-SUN PHARMACEUTICAL INDUSTRIES LTD-2025RR-501179

PATIENT
  Age: 80 Year
  Sex: Female
  Weight: 50 kg

DRUGS (6)
  1. SONIDEGIB [Suspect]
     Active Substance: SONIDEGIB
     Indication: Basal cell carcinoma
     Dosage: 200 MILLIGRAM, DAILY
     Route: 048
     Dates: start: 20210111, end: 20240215
  2. CANDESARTAN CILEXETIL [Concomitant]
     Active Substance: CANDESARTAN CILEXETIL
     Indication: Pre-existing disease
     Dosage: 16 MILLIGRAM, DAILY
  3. LEVOTHYROXINE SODIUM\POTASSIUM IODIDE [Concomitant]
     Active Substance: LEVOTHYROXINE SODIUM\POTASSIUM IODIDE
     Indication: Pre-existing disease
     Dosage: 50 MCG, DAILY
  4. ALLOPURINOL [Concomitant]
     Active Substance: ALLOPURINOL
     Indication: Pre-existing disease
     Dosage: 100 MILLIGRAM, DAILY
  5. ASPIRIN [Concomitant]
     Active Substance: ASPIRIN
     Indication: Pre-existing disease
     Dosage: 100 MILLIGRAM, DAILY
  6. PANTOPRAZOLE [Concomitant]
     Active Substance: PANTOPRAZOLE
     Indication: Product used for unknown indication
     Route: 048
     Dates: start: 202108

REACTIONS (1)
  - Neoplasm progression [Not Recovered/Not Resolved]

NARRATIVE: CASE EVENT DATE: 20240215
